FAERS Safety Report 7693369-6 (Version None)
Quarter: 2011Q3

REPORT INFORMATION
  Report Type: 
  Country: None (occurrence: None)
  Receive Date: 20110816
  Receipt Date: 20110802
  Transmission Date: 20111222
  Serious: Yes (Hospitalization)
  Sender: FDA-Public Use
  Company Number: AUR-APL-2011-04521

PATIENT
  Age: 88 Year
  Sex: Female
  Weight: 56.8 kg

DRUGS (1)
  1. LAMOTRIGINE [Suspect]
     Indication: EPILEPSY
     Dosage: (75 MG, 1 D), ORAL
     Route: 048
     Dates: end: 20110715

REACTIONS (1)
  - DERMATITIS EXFOLIATIVE [None]
